APPROVED DRUG PRODUCT: NYSTATIN
Active Ingredient: NYSTATIN
Strength: 100,000 UNITS/GM
Dosage Form/Route: OINTMENT;TOPICAL
Application: A062472 | Product #001 | TE Code: AT
Applicant: PADAGIS US LLC
Approved: Feb 13, 1984 | RLD: No | RS: No | Type: RX